FAERS Safety Report 16387680 (Version 1)
Quarter: 2019Q2

REPORT INFORMATION
  Report Type: Spontaneous
  Country: FR (occurrence: FR)
  Receive Date: 20190604
  Receipt Date: 20190604
  Transmission Date: 20190711
  Serious: Yes (Hospitalization)
  Sender: FDA-Public Use
  Company Number: FR-ACCORD-130824

PATIENT
  Age: 66 Year
  Sex: Male
  Weight: 70 kg

DRUGS (15)
  1. PACLITAXEL KABI [Suspect]
     Active Substance: PACLITAXEL
     Indication: METASTATIC BRONCHIAL CARCINOMA
     Dosage: STRENGTH : 6 MG / ML
     Route: 041
     Dates: start: 20190128, end: 20190207
  2. TRANSIPEG [Concomitant]
     Dosage: STRENGTH : 2.95 G
     Route: 048
  3. FRAGMINE [Concomitant]
     Active Substance: DALTEPARIN SODIUM
     Route: 058
  4. INIPOMP [Concomitant]
     Active Substance: PANTOPRAZOLE SODIUM
     Route: 048
  5. PLAQUENIL [Concomitant]
     Active Substance: HYDROXYCHLOROQUINE SULFATE
     Dosage: STRENGTH : 200 MG
     Route: 048
  6. CISPLATIN MYLAN [Suspect]
     Active Substance: CISPLATIN
     Indication: METASTATIC BRONCHIAL CARCINOMA
     Route: 041
     Dates: start: 20190107, end: 20190107
  7. PAROXETINE. [Concomitant]
     Active Substance: PAROXETINE
     Route: 048
  8. OXYCONTIN [Concomitant]
     Active Substance: OXYCODONE HYDROCHLORIDE
     Dosage: STRENGTH : 40 MG
     Route: 048
  9. TEMESTA [Concomitant]
     Dosage: STRENGTH : 2.5 MG
     Route: 048
  10. DOCETAXEL ACCORD [Suspect]
     Active Substance: DOCETAXEL
     Indication: METASTATIC BRONCHIAL CARCINOMA
     Route: 041
     Dates: start: 20190107, end: 20190107
  11. ZYPREXA [Concomitant]
     Active Substance: OLANZAPINE
     Route: 048
  12. LEVOTHYROX [Concomitant]
     Active Substance: LEVOTHYROXINE
     Route: 048
  13. CARBOPLATIN ACCORD [Suspect]
     Active Substance: CARBOPLATIN
     Indication: METASTATIC BRONCHIAL CARCINOMA
     Dosage: STRENGTH : 10 MG / ML
     Route: 041
     Dates: start: 20190128, end: 20190128
  14. SEROPLEX [Concomitant]
     Active Substance: ESCITALOPRAM OXALATE
     Route: 048
  15. SOLUPRED [Concomitant]
     Route: 048

REACTIONS (1)
  - Pericardial effusion [Recovered/Resolved]

NARRATIVE: CASE EVENT DATE: 20190209
